FAERS Safety Report 15192807 (Version 1)
Quarter: 2018Q3

REPORT INFORMATION
  Report Type: Spontaneous
  Country: GR (occurrence: GR)
  Receive Date: 20180725
  Receipt Date: 20180725
  Transmission Date: 20181010
  Serious: Yes (Death, Other)
  Sender: FDA-Public Use
  Company Number: GR-FLAMINGO-001965

PATIENT
  Sex: Female
  Weight: .55 kg

DRUGS (4)
  1. AMOXICILLIN. [Suspect]
     Active Substance: AMOXICILLIN
     Route: 064
  2. THYROXINE [Suspect]
     Active Substance: LEVOTHYROXINE
     Dosage: MATERNAL DOSE: 175 UG BID
     Route: 064
  3. BETAMETHASONE. [Suspect]
     Active Substance: BETAMETHASONE
     Dosage: MATERNAL DOSE: 12 MG
     Route: 064
  4. METRONIDAZOLE. [Suspect]
     Active Substance: METRONIDAZOLE
     Route: 064

REACTIONS (4)
  - Neonatal respiratory distress syndrome [Fatal]
  - Low birth weight baby [Unknown]
  - Premature baby [Unknown]
  - Foetal exposure during pregnancy [Unknown]
